FAERS Safety Report 16652759 (Version 1)
Quarter: 2019Q3

REPORT INFORMATION
  Report Type: Report from Study
  Country: CA (occurrence: CA)
  Receive Date: 20190731
  Receipt Date: 20190731
  Transmission Date: 20191004
  Serious: Yes (Other)
  Sender: FDA-Public Use
  Company Number: CA-JNJFOC-20181119937

PATIENT
  Age: 72 Year
  Sex: Female

DRUGS (1)
  1. GOLIMUMAB [Suspect]
     Active Substance: GOLIMUMAB
     Indication: RHEUMATOID ARTHRITIS
     Dosage: STRENGTH = 180 MG
     Route: 042
     Dates: start: 20150806

REACTIONS (6)
  - Fall [Recovered/Resolved]
  - Tooth extraction [Recovering/Resolving]
  - Contusion [Recovered/Resolved]
  - Syncope [Recovered/Resolved]
  - Skin laceration [Recovered/Resolved]
  - Pain in extremity [Recovered/Resolved]

NARRATIVE: CASE EVENT DATE: 20181225
